FAERS Safety Report 9016869 (Version 2)
Quarter: 2013Q1

REPORT INFORMATION
  Report Type: Spontaneous
  Country: IL (occurrence: IL)
  Receive Date: 20130117
  Receipt Date: 20130201
  Transmission Date: 20140127
  Serious: Yes (Hospitalization)
  Sender: FDA-Public Use
  Company Number: IL-ELI_LILLY_AND_COMPANY-IL201301002880

PATIENT
  Sex: Female

DRUGS (2)
  1. FORTEO [Suspect]
     Indication: OSTEOPOROSIS
     Dosage: 20 UG, QD
     Route: 058
     Dates: start: 20121220
  2. TRAMADEX [Concomitant]
     Indication: BACK PAIN
     Dosage: UNK, UNKNOWN
     Route: 065

REACTIONS (2)
  - Asthenia [Unknown]
  - Dizziness [Unknown]
